FAERS Safety Report 9509694 (Version 1)
Quarter: 2013Q3

REPORT INFORMATION
  Report Type: Spontaneous
  Country: US (occurrence: US)
  Receive Date: 20130909
  Receipt Date: 20130909
  Transmission Date: 20140515
  Serious: No
  Sender: FDA-Public Use
  Company Number: US-BRISTOL-MYERS SQUIBB COMPANY-17177775

PATIENT
  Age: 16 Year
  Sex: Male
  Weight: 99.77 kg

DRUGS (2)
  1. ABILIFY [Suspect]
     Indication: DEPRESSION
  2. LEXAPRO [Concomitant]

REACTIONS (6)
  - Judgement impaired [Unknown]
  - Psychomotor skills impaired [Unknown]
  - Abnormal behaviour [Unknown]
  - Weight increased [Unknown]
  - Blood cholesterol increased [Unknown]
  - Hypertension [Unknown]
